FAERS Safety Report 7244270-3 (Version None)
Quarter: 2011Q1

REPORT INFORMATION
  Report Type: 
  Country: None (occurrence: None)
  Receive Date: 20110118
  Receipt Date: 20110105
  Transmission Date: 20110831
  Serious: Yes (Other)
  Sender: FDA-Public Use
  Company Number: DE-1184574

PATIENT
  Sex: Female

DRUGS (2)
  1. AZOPT [Suspect]
     Dosage: OPHTHALMIC
     Route: 047
     Dates: start: 20090101
  2. CIPRALEX (ESCITALOPRAM OXALATE) [Concomitant]

REACTIONS (2)
  - DEPRESSION [None]
  - CONDITION AGGRAVATED [None]
